FAERS Safety Report 5450396-7 (Version None)
Quarter: 2007Q3

REPORT INFORMATION
  Report Type: 
  Country: None (occurrence: None)
  Receive Date: 20070912
  Receipt Date: 20070901
  Transmission Date: 20080115
  Serious: Yes (Other)
  Sender: FDA-Public Use
  Company Number: US-PFIZER INC-2007074166

PATIENT
  Sex: Male
  Weight: 117.72 kg

DRUGS (6)
  1. CHANTIX [Suspect]
     Indication: SMOKING CESSATION THERAPY
     Dates: start: 20070101, end: 20070823
  2. BUSPAR [Concomitant]
  3. MONTELUKAST SODIUM [Concomitant]
     Indication: HYPERSENSITIVITY
  4. PAXIL [Concomitant]
  5. VITAMIN B COMPLEX CAP [Concomitant]
  6. FISH OIL [Concomitant]

REACTIONS (4)
  - HEART RATE ABNORMAL [None]
  - HOT FLUSH [None]
  - NAUSEA [None]
  - PALPITATIONS [None]
